FAERS Safety Report 14067560 (Version 2)
Quarter: 2018Q1

REPORT INFORMATION
  Report Type: Spontaneous
  Country: CA (occurrence: CA)
  Receive Date: 20171010
  Receipt Date: 20180130
  Transmission Date: 20180508
  Serious: Yes (Other)
  Sender: FDA-Public Use
  Company Number: CA-CONCORDIA PHARMACEUTICALS INC.-GSH201710-005660

PATIENT
  Age: 58 Year
  Sex: Female

DRUGS (14)
  1. PARIET [Concomitant]
     Active Substance: RABEPRAZOLE SODIUM
  2. APO-MELOXICAM [Concomitant]
     Active Substance: MELOXICAM
  3. ENBREL [Suspect]
     Active Substance: ETANERCEPT
     Indication: RHEUMATOID ARTHRITIS
     Route: 058
     Dates: start: 20130911, end: 20160715
  4. PREDNISONE. [Concomitant]
     Active Substance: PREDNISONE
  5. RISEDRONATE SODIUM. [Concomitant]
     Active Substance: RISEDRONATE SODIUM
  6. HYDROXYCHLOROQUINE 200 MG TABLET [Suspect]
     Active Substance: HYDROXYCHLOROQUINE
     Indication: RHEUMATOID ARTHRITIS
     Route: 048
  7. DEPO-MEDROL [Concomitant]
     Active Substance: METHYLPREDNISOLONE ACETATE
  8. PLAQUENIL [Suspect]
     Active Substance: HYDROXYCHLOROQUINE SULFATE
     Route: 048
     Dates: start: 20110614
  9. METHOTREXATE SODIUM. [Suspect]
     Active Substance: METHOTREXATE SODIUM
     Indication: RHEUMATOID ARTHRITIS
     Route: 048
  10. MELOXICAM. [Concomitant]
     Active Substance: MELOXICAM
  11. ACTONEL [Concomitant]
     Active Substance: RISEDRONATE SODIUM
  12. SULFASALAZINE. [Suspect]
     Active Substance: SULFASALAZINE
     Indication: RHEUMATOID ARTHRITIS
     Route: 048
  13. LEFLUNOMIDE. [Concomitant]
     Active Substance: LEFLUNOMIDE
  14. ERGOCALCIFEROL. [Concomitant]
     Active Substance: ERGOCALCIFEROL

REACTIONS (9)
  - Joint swelling [Unknown]
  - Alanine aminotransferase increased [Not Recovered/Not Resolved]
  - Hepatic enzyme increased [Not Recovered/Not Resolved]
  - Rheumatoid arthritis [Not Recovered/Not Resolved]
  - Drug ineffective [Not Recovered/Not Resolved]
  - Treatment failure [Not Recovered/Not Resolved]
  - Wrist deformity [Not Recovered/Not Resolved]
  - Finger deformity [Not Recovered/Not Resolved]
  - Mouth ulceration [Not Recovered/Not Resolved]
